FAERS Safety Report 6944741-0 (Version None)
Quarter: 2010Q3

REPORT INFORMATION
  Report Type: 
  Country: None (occurrence: None)
  Receive Date: 20100827
  Receipt Date: 20100818
  Transmission Date: 20110219
  Serious: Yes (Other)
  Sender: FDA-Public Use
  Company Number: GB-ASTRAZENECA-2010SE38761

PATIENT
  Age: 37 Year
  Sex: Female

DRUGS (1)
  1. LIDOCAINE [Suspect]
     Indication: LOCAL ANAESTHESIA
     Route: 065
     Dates: start: 20100804

REACTIONS (1)
  - EPILEPSY [None]
